FAERS Safety Report 12266893 (Version 1)
Quarter: 2016Q2

REPORT INFORMATION
  Report Type: Spontaneous
  Country: US (occurrence: US)
  Receive Date: 20160414
  Receipt Date: 20160414
  Transmission Date: 20160815
  Serious: No
  Sender: FDA-Public Use
  Company Number: US-BAYER-2016-065442

PATIENT
  Age: 5 Year
  Sex: Female

DRUGS (3)
  1. FLINTSTONES [Concomitant]
  2. MIRALAX [Suspect]
     Active Substance: POLYETHYLENE GLYCOL 3350
     Indication: CONSTIPATION
     Dosage: 1 DF, QD
     Route: 048
     Dates: end: 201603
  3. MIRALAX [Suspect]
     Active Substance: POLYETHYLENE GLYCOL 3350
     Indication: CONSTIPATION
     Dosage: 0.5 DF, QD
     Route: 048
     Dates: start: 2013

REACTIONS (8)
  - Mood swings [Recovered/Resolved]
  - Product use issue [None]
  - Product use issue [None]
  - Drug prescribing error [None]
  - Paranoia [Recovered/Resolved]
  - Anger [Recovered/Resolved]
  - Fear [Recovered/Resolved]
  - Abnormal behaviour [Recovered/Resolved]

NARRATIVE: CASE EVENT DATE: 2013
